FAERS Safety Report 12284867 (Version 2)
Quarter: 2016Q4

REPORT INFORMATION
  Report Type: Spontaneous
  Country: US (occurrence: US)
  Receive Date: 20160420
  Receipt Date: 20161011
  Transmission Date: 20170207
  Serious: No
  Sender: FDA-Public Use
  Company Number: US-TEVA-647794USA

PATIENT
  Age: 44 Year
  Sex: Female

DRUGS (1)
  1. ZECUITY [Suspect]
     Active Substance: SUMATRIPTAN SUCCINATE
     Route: 062
     Dates: start: 201602, end: 201602

REACTIONS (7)
  - Application site swelling [Unknown]
  - Application site rash [Unknown]
  - Application site pruritus [Not Recovered/Not Resolved]
  - Application site pain [Recovered/Resolved]
  - Application site discomfort [Recovered/Resolved]
  - Application site erythema [Recovered/Resolved]
  - Application site dryness [Not Recovered/Not Resolved]

NARRATIVE: CASE EVENT DATE: 201602
